FAERS Safety Report 25487089 (Version 1)
Quarter: 2025Q2

REPORT INFORMATION
  Report Type: Other
  Country: DE (occurrence: DE)
  Receive Date: 20250627
  Receipt Date: 20250627
  Transmission Date: 20250717
  Serious: Yes (Hospitalization)
  Sender: ANI
  Company Number: DE-ANIPHARMA-023325

PATIENT
  Age: 40 Year
  Sex: Female

DRUGS (6)
  1. CYCLOPHOSPHAMIDE [Suspect]
     Active Substance: CYCLOPHOSPHAMIDE
     Indication: Ewing^s sarcoma
  2. VINCRISTINE [Concomitant]
     Active Substance: VINCRISTINE
     Indication: Ewing^s sarcoma
  3. DOXORUBICIN [Concomitant]
     Active Substance: DOXORUBICIN
     Indication: Ewing^s sarcoma
  4. IFOSFAMIDE [Concomitant]
     Active Substance: IFOSFAMIDE
     Indication: Ewing^s sarcoma
  5. ETOPOSIDE [Concomitant]
     Active Substance: ETOPOSIDE
     Indication: Ewing^s sarcoma
  6. SODIUM BICARBONATE [Concomitant]
     Active Substance: SODIUM BICARBONATE
     Indication: Fanconi syndrome

REACTIONS (3)
  - Photopsia [Recovering/Resolving]
  - Headache [Recovering/Resolving]
  - Dizziness [Recovering/Resolving]
